FAERS Safety Report 20532964 (Version 4)
Quarter: 2022Q2

REPORT INFORMATION
  Report Type: Spontaneous
  Country: JP (occurrence: JP)
  Receive Date: 20220301
  Receipt Date: 20220418
  Transmission Date: 20220720
  Serious: Yes (Death, Hospitalization, Other)
  Sender: FDA-Public Use
  Company Number: JP-MSD-2202JPN003602J

PATIENT
  Age: 74 Year
  Sex: Male

DRUGS (13)
  1. MOLNUPIRAVIR [Suspect]
     Active Substance: MOLNUPIRAVIR
     Indication: COVID-19 treatment
     Dosage: 800 MILLIGRAM, BID
     Route: 048
     Dates: start: 20220128, end: 20220202
  2. CLOPIDOGREL BISULFATE [Suspect]
     Active Substance: CLOPIDOGREL BISULFATE
     Dosage: 1 DOSAGE FORM, QD
     Route: 048
     Dates: start: 20200109, end: 20220216
  3. DONEPEZIL HYDROCHLORIDE [Suspect]
     Active Substance: DONEPEZIL HYDROCHLORIDE
     Dosage: 1 DOSAGE FORM, QD
     Route: 048
     Dates: start: 20200109, end: 20220216
  4. RABEPRAZOLE SODIUM [Suspect]
     Active Substance: RABEPRAZOLE SODIUM
     Dosage: 1 DOSAGE FORM, QD
     Route: 048
     Dates: start: 20200109, end: 20220216
  5. CALONAL [Suspect]
     Active Substance: ACETAMINOPHEN
     Dosage: 1 DOSAGE FORM, BID
     Route: 048
     Dates: start: 20200109, end: 20200216
  6. PREGABALIN [Suspect]
     Active Substance: PREGABALIN
     Dosage: 1 DOSAGE FORM, QD
     Route: 048
     Dates: start: 20200109, end: 20200216
  7. RISPERIDONE [Suspect]
     Active Substance: RISPERIDONE
     Dosage: 1 DOSAGE FORM, QD
     Route: 048
     Dates: start: 20200109, end: 20220216
  8. QUETIAPINE FUMARATE [Suspect]
     Active Substance: QUETIAPINE FUMARATE
     Dosage: 1 DOSAGE FORM, BID
     Route: 048
     Dates: start: 20200109, end: 20200528
  9. QUETIAPINE FUMARATE [Suspect]
     Active Substance: QUETIAPINE FUMARATE
     Dosage: 2.5 DOSAGE FORM
     Route: 048
     Dates: start: 20200529, end: 20220216
  10. CARVEDILOL [Suspect]
     Active Substance: CARVEDILOL
     Dosage: 0.5 DOSAGE FORM, QD
     Route: 048
     Dates: start: 20200109, end: 20220216
  11. ETIZOLAM [Suspect]
     Active Substance: ETIZOLAM
     Dosage: 1 DOSAGE FORM, QD
     Route: 048
     Dates: start: 20200608, end: 20220216
  12. CALTAN [Suspect]
     Active Substance: CALCIUM CARBONATE
     Dosage: 0.5 DOSAGE FORM, TID
     Route: 048
     Dates: start: 20200207, end: 20220216
  13. HERBALS [Suspect]
     Active Substance: HERBALS
     Dosage: 2.5 GRAM, QD
     Route: 048
     Dates: start: 20220107, end: 20220216

REACTIONS (3)
  - Pneumonia [Fatal]
  - Clostridium difficile infection [Not Recovered/Not Resolved]
  - Diarrhoea [Not Recovered/Not Resolved]

NARRATIVE: CASE EVENT DATE: 20220201
